FAERS Safety Report 4340820-5 (Version None)
Quarter: 2004Q2

REPORT INFORMATION
  Report Type: 
  Country: None (occurrence: None)
  Receive Date: 20040419
  Receipt Date: 20030911
  Transmission Date: 20050107
  Serious: No
  Sender: FDA-Public Use
  Company Number: US-GLAXOSMITHKLINE-A0425421A

PATIENT
  Age: 14 Year
  Sex: Female

DRUGS (4)
  1. ESKALITH [Suspect]
     Dosage: 450Z SEE DOSAGE TEXT
     Route: 048
  2. TRILEPTAL [Concomitant]
  3. ALEVE [Concomitant]
  4. ANTACID TAB [Concomitant]

REACTIONS (1)
  - DIARRHOEA [None]
